FAERS Safety Report 12834898 (Version 3)
Quarter: 2016Q4

REPORT INFORMATION
  Report Type: Report from Study
  Country: IL (occurrence: IL)
  Receive Date: 20161010
  Receipt Date: 20161117
  Transmission Date: 20170207
  Serious: Yes (Life-Threatening, Hospitalization)
  Sender: FDA-Public Use
  Company Number: IL-B.I. PHARMACEUTICALS,INC./RIDGEFIELD-2016-BI-30135BI

PATIENT
  Age: 59 Year
  Sex: Female
  Weight: 90 kg

DRUGS (12)
  1. BLINDED LINAGLIPTIN [Suspect]
     Active Substance: LINAGLIPTIN
     Indication: TYPE 2 DIABETES MELLITUS
     Route: 048
     Dates: start: 20140615
  2. ALLORIL [Concomitant]
     Indication: CHRONIC KIDNEY DISEASE
     Route: 048
     Dates: start: 20160925
  3. ALPHA D3 [Concomitant]
     Indication: CHRONIC KIDNEY DISEASE
     Route: 065
     Dates: start: 20161108
  4. LANTON [Concomitant]
     Indication: PROPHYLAXIS AGAINST GASTROINTESTINAL ULCER
     Route: 048
     Dates: start: 200909
  5. FUSID [Concomitant]
     Active Substance: FUROSEMIDE
     Indication: CARDIAC FAILURE CONGESTIVE
     Dosage: 40MG X 2
     Route: 048
     Dates: start: 20140103
  6. CARTIA XT [Concomitant]
     Active Substance: DILTIAZEM HYDROCHLORIDE
     Indication: MYOCARDIAL ISCHAEMIA
     Route: 048
     Dates: start: 2008
  7. XARELTO [Concomitant]
     Active Substance: RIVAROXABAN
     Indication: ATRIAL FIBRILLATION
     Route: 048
     Dates: start: 20150610
  8. COLCHICINE. [Concomitant]
     Active Substance: COLCHICINE
     Indication: GOUT
     Route: 048
     Dates: start: 201006
  9. TRAMADEX [Concomitant]
     Active Substance: TRAMADOL
     Indication: BACK PAIN
     Route: 048
     Dates: start: 20120330
  10. FORSENOL [Concomitant]
     Indication: CHRONIC KIDNEY DISEASE
     Route: 048
     Dates: start: 20160608
  11. CARVEDILOL. [Concomitant]
     Active Substance: CARVEDILOL
     Indication: CARDIAC FAILURE CONGESTIVE
     Route: 048
     Dates: start: 200812
  12. AMLOW [Concomitant]
     Indication: MYOCARDIAL ISCHAEMIA
     Route: 065
     Dates: start: 20160505

REACTIONS (5)
  - Hypoglycaemia [Recovered/Resolved]
  - Urinary tract infection [Recovered/Resolved]
  - Acute kidney injury [Not Recovered/Not Resolved]
  - Urosepsis [Recovered/Resolved]
  - Glomerular filtration rate decreased [Unknown]

NARRATIVE: CASE EVENT DATE: 20160218
